FAERS Safety Report 23241539 (Version 5)
Quarter: 2024Q1

REPORT INFORMATION
  Report Type: Spontaneous
  Country: JP (occurrence: None)
  Receive Date: 20231129
  Receipt Date: 20240304
  Transmission Date: 20240410
  Serious: Yes (Life-Threatening, Other)
  Sender: FDA-Public Use
  Company Number: 2023A267967

PATIENT
  Age: 62 Year
  Sex: Male
  Weight: 58 kg

DRUGS (16)
  1. ONDEXXYA [Suspect]
     Active Substance: ANDEXANET ALFA
     Indication: Endocarditis
     Dosage: 800 MG + 960 MG
     Route: 042
     Dates: start: 20230410, end: 20230410
  2. XARELTO [Concomitant]
     Active Substance: RIVAROXABAN
     Indication: Cerebral infarction
     Route: 048
     Dates: start: 20230405, end: 20230410
  3. DIPRIVAN [Concomitant]
     Active Substance: ISOPROPYL ALCOHOL\PROPOFOL
     Indication: Endocarditis
     Dosage: DOSE UNKNOWN
     Route: 042
     Dates: start: 20230410, end: 20230411
  4. CEFAZOLIN SODIUM [Concomitant]
     Active Substance: CEFAZOLIN SODIUM
     Indication: Endocarditis
     Dosage: DOSE UNKNOWN
     Route: 042
     Dates: start: 20230410
  5. HEPARIN SODIUM [Concomitant]
     Active Substance: HEPARIN SODIUM
     Indication: Endocarditis
     Dosage: 10000 IU INTERNATIONAL UNIT(S) 2 TIMES A DAY
     Route: 042
     Dates: start: 20230410, end: 20230410
  6. HEPARIN SODIUM [Concomitant]
     Active Substance: HEPARIN SODIUM
     Indication: Endocarditis
     Dosage: 30000 IU INTERNATIONAL UNIT(S) 2 TIMES A DAY
     Route: 042
     Dates: start: 20230410, end: 20230410
  7. HEPARIN SODIUM [Concomitant]
     Active Substance: HEPARIN SODIUM
     Indication: Endocarditis
     Dosage: 50000 IU INTERNATIONAL UNIT(S) DAILY
     Route: 042
     Dates: start: 20230410, end: 20230410
  8. HEPARIN SODIUM [Concomitant]
     Active Substance: HEPARIN SODIUM
     Indication: Endocarditis
     Dosage: 90000 IU INTERNATIONAL UNIT(S) DAILY
     Route: 042
     Dates: start: 20230410, end: 20230410
  9. NICARDIPINE HYDROCHLORIDE [Concomitant]
     Active Substance: NICARDIPINE HYDROCHLORIDE
     Indication: Endocarditis
     Route: 042
     Dates: start: 20230410
  10. DOPUTAMIN [Concomitant]
     Indication: Endocarditis
     Route: 042
     Dates: start: 20230410
  11. ACOALAN [Concomitant]
     Indication: Endocarditis
     Dosage: 500 IU INTERNATIONAL UNIT(S) DAILY
     Route: 042
     Dates: start: 20230410, end: 20230410
  12. ACOALAN [Concomitant]
     Indication: Endocarditis
     Dosage: 700 IU INTERNATIONAL UNIT(S) DAILY
     Route: 042
     Dates: start: 20230410, end: 20230410
  13. FENTANYL [Concomitant]
     Active Substance: FENTANYL\FENTANYL CITRATE
     Indication: Endocarditis
     Route: 042
     Dates: start: 20230410, end: 20230410
  14. REMIFENTANIL [Concomitant]
     Active Substance: REMIFENTANIL
     Indication: Endocarditis
     Route: 042
     Dates: start: 20230410, end: 20230411
  15. ROCURONIUM BROMIDE [Concomitant]
     Active Substance: ROCURONIUM BROMIDE
     Indication: Endocarditis
     Route: 042
     Dates: start: 20230410, end: 20230411
  16. PROTAMINE SULFATE [Concomitant]
     Active Substance: PROTAMINE SULFATE
     Indication: Endocarditis
     Route: 042
     Dates: start: 20230411, end: 20230411

REACTIONS (3)
  - Coagulation time prolonged [Unknown]
  - Heparin resistance [Recovering/Resolving]
  - Off label use [Unknown]

NARRATIVE: CASE EVENT DATE: 20230410
